FAERS Safety Report 9152543 (Version 1)
Quarter: 2013Q1

REPORT INFORMATION
  Report Type: Spontaneous
  Country: JP (occurrence: JP)
  Receive Date: 20130308
  Receipt Date: 20130308
  Transmission Date: 20140127
  Serious: Yes (Hospitalization)
  Sender: FDA-Public Use
  Company Number: JP-B.I. PHARMACEUTICALS,INC./RIDGEFIELD-2013-BI-05552NB

PATIENT
  Age: 82 Year
  Sex: Female

DRUGS (3)
  1. MICARDIS [Suspect]
     Indication: HYPERTENSION
     Route: 048
  2. LEXAPRO [Suspect]
     Indication: DEPRESSION
     Route: 048
  3. FLUITRAN [Suspect]
     Indication: HYPERTENSION
     Route: 048

REACTIONS (1)
  - Hyponatraemia [Unknown]
